FAERS Safety Report 7656783-0 (Version None)
Quarter: 2011Q3

REPORT INFORMATION
  Report Type: 
  Country: None (occurrence: None)
  Receive Date: 20110804
  Receipt Date: 20110729
  Transmission Date: 20111222
  Serious: Yes (Other)
  Sender: FDA-Public Use
  Company Number: PHHY2011GB60243

PATIENT
  Age: 61 Year
  Sex: Female

DRUGS (11)
  1. TRAMADOL HCL [Suspect]
     Dosage: 8 DF, DAILY
  2. NAPROXEN [Suspect]
     Dosage: 500 MG, BID
  3. OXYBUTYNIN [Concomitant]
     Dosage: 3 MG, BID
  4. SERETIDE [Concomitant]
  5. DICLOFENAC SODIUM [Concomitant]
  6. ACETAMINOPHEN [Suspect]
     Dosage: 8 DF, DAILY
  7. MISOPROSTOL [Suspect]
     Dosage: 500 MG, BID
  8. LANSOPRAZOLE [Concomitant]
     Dosage: 30 MG, QD
  9. AMITRIPTYLINE HCL [Suspect]
     Dosage: 10 MG, DAILY
  10. CITALOPRAM [Concomitant]
  11. VENTOLIN HFA [Concomitant]

REACTIONS (9)
  - IDIOPATHIC THROMBOCYTOPENIC PURPURA [None]
  - JOINT SWELLING [None]
  - ARTHRALGIA [None]
  - PAIN [None]
  - MUSCULOSKELETAL STIFFNESS [None]
  - ASTHMA [None]
  - RHEUMATOID ARTHRITIS [None]
  - OSTEOARTHRITIS [None]
  - SYNOVITIS [None]
